FAERS Safety Report 9823376 (Version 3)
Quarter: 2015Q3

REPORT INFORMATION
  Report Type: Spontaneous
  Country: US (occurrence: US)
  Receive Date: 20140116
  Receipt Date: 20150807
  Transmission Date: 20151125
  Serious: No
  Sender: FDA-Public Use
  Company Number: US-GILEAD-2011-0035074

PATIENT
  Age: 66 Year
  Sex: Female

DRUGS (15)
  1. LETAIRIS [Suspect]
     Active Substance: AMBRISENTAN
     Indication: PULMONARY HYPERTENSION
     Route: 048
     Dates: start: 20101028
  2. LETAIRIS [Suspect]
     Active Substance: AMBRISENTAN
     Indication: ATRIAL SEPTAL DEFECT
  3. DIGOXIN. [Concomitant]
     Active Substance: DIGOXIN
  4. EFFEXOR [Concomitant]
     Active Substance: VENLAFAXINE HYDROCHLORIDE
  5. LETAIRIS [Suspect]
     Active Substance: AMBRISENTAN
     Indication: SLEEP APNOEA SYNDROME
  6. HUMALOG [Concomitant]
     Active Substance: INSULIN LISPRO
  7. LASIX [Concomitant]
     Active Substance: FUROSEMIDE
  8. LANTUS [Concomitant]
     Active Substance: INSULIN GLARGINE
  9. KLONOPIN [Concomitant]
     Active Substance: CLONAZEPAM
  10. BABY ASA [Concomitant]
     Active Substance: ASPIRIN
  11. ZOCOR [Concomitant]
     Active Substance: SIMVASTATIN
  12. METOPROLOL [Concomitant]
     Active Substance: METOPROLOL
  13. ALDACTONE [Concomitant]
     Active Substance: SPIRONOLACTONE
  14. MECLIZINE [Concomitant]
     Active Substance: MECLIZINE\MECLIZINE HYDROCHLORIDE
  15. MORPHINE [Concomitant]
     Active Substance: MORPHINE

REACTIONS (2)
  - Abdominal pain upper [Unknown]
  - Fatigue [Recovered/Resolved]
